FAERS Safety Report 10564415 (Version 2)
Quarter: 2014Q4

REPORT INFORMATION
  Report Type: Report from Study
  Country: JP (occurrence: JP)
  Receive Date: 20141104
  Receipt Date: 20141117
  Transmission Date: 20150529
  Serious: Yes (Hospitalization)
  Sender: FDA-Public Use
  Company Number: JP-IPSEN BIOPHARMACEUTICALS, INC.-2014-5877

PATIENT
  Age: 70 Year
  Sex: Male
  Weight: 40.3 kg

DRUGS (20)
  1. PARIET [Concomitant]
     Active Substance: RABEPRAZOLE SODIUM
     Indication: GASTROOESOPHAGEAL REFLUX DISEASE
     Route: 048
     Dates: end: 20141023
  2. LIVACT [Concomitant]
     Active Substance: AMINO ACIDS
     Indication: HYPOALBUMINAEMIA
     Route: 048
     Dates: end: 20141023
  3. ALDACTONE [Concomitant]
     Active Substance: SPIRONOLACTONE
     Indication: ASCITES
     Route: 048
     Dates: start: 20140716, end: 20141023
  4. LAC-B [Concomitant]
     Active Substance: BIFIDOBACTERIUM SPP.
     Indication: DIARRHOEA
     Dosage: 3 TABLETS
     Route: 048
     Dates: end: 20141023
  5. RINDERON-VG 0.12% [Concomitant]
     Indication: PRURITUS
     Dosage: NOT REPORTED
     Route: 062
  6. MYSLEE [Concomitant]
     Active Substance: ZOLPIDEM TARTRATE
     Indication: INSOMNIA
     Route: 048
     Dates: start: 20141001, end: 20141023
  7. LOXONIN TAPE [Concomitant]
     Indication: BACK PAIN
     Route: 062
     Dates: start: 20140718
  8. LIPACEREON [Concomitant]
     Indication: ENZYME SUPPLEMENTATION
     Route: 048
     Dates: start: 20140811, end: 20141023
  9. ALBUMIN TANNATE [Concomitant]
     Active Substance: ALBUMIN BOVINE\TANNIC ACID
     Indication: DIARRHOEA
     Route: 048
     Dates: end: 20141023
  10. DERMOVATE 0.05% [Concomitant]
     Indication: PRURITUS
     Dosage: NOT REPORTED
     Route: 062
  11. HIRUDOID 0.3% [Concomitant]
     Indication: PRURITUS
     Dosage: NOT REPORTED
     Route: 062
  12. LIDOMEX CREAM 0.3% [Concomitant]
     Indication: PRURITUS
     Dosage: NOT REPORTED
     Route: 062
  13. AZUNOL GARGLE LIQUID [Concomitant]
     Indication: PROPHYLAXIS
     Dosage: NOT REPORTED
     Route: 065
  14. SOMATULINE AUTOGEL [Suspect]
     Active Substance: LANREOTIDE ACETATE
     Indication: PANCREATIC NEUROENDOCRINE TUMOUR
     Dosage: 120MG
     Route: 058
     Dates: start: 20140310
  15. MONILAC 65% [Concomitant]
     Indication: HEPATIC ENCEPHALOPATHY PROPHYLAXIS
     Route: 048
     Dates: end: 20141023
  16. CALONAL [Concomitant]
     Active Substance: ACETAMINOPHEN
     Indication: ABDOMINAL PAIN UPPER
     Route: 048
     Dates: start: 20140728, end: 20141023
  17. GASMOTIN [Concomitant]
     Active Substance: MOSAPRIDE CITRATE
     Indication: GASTROOESOPHAGEAL REFLUX DISEASE
     Route: 048
     Dates: end: 20141023
  18. TSMURA RIKKUNSHITO EXTRACT GRANULES FOR ETHICAL USE [Concomitant]
     Indication: GASTROOESOPHAGEAL REFLUX DISEASE
     Route: 048
     Dates: end: 20141023
  19. LASIX [Concomitant]
     Active Substance: FUROSEMIDE
     Indication: ASCITES
     Dosage: 40 TO 80MG
     Route: 048
     Dates: start: 20140716, end: 20141023
  20. DAIKENCHUTO [Concomitant]
     Active Substance: HERBALS
     Indication: GASTROOESOPHAGEAL REFLUX DISEASE
     Route: 048
     Dates: start: 20141006, end: 20141023

REACTIONS (1)
  - Duodenal stenosis [Not Recovered/Not Resolved]

NARRATIVE: CASE EVENT DATE: 20141020
